FAERS Safety Report 5939831-5 (Version None)
Quarter: 2008Q4

REPORT INFORMATION
  Report Type: 
  Country: None (occurrence: None)
  Receive Date: 20081031
  Receipt Date: 20081031
  Transmission Date: 20090506
  Serious: Yes (Other)
  Sender: FDA-Public Use
  Company Number: None

PATIENT
  Age: 50 Year
  Sex: Female
  Weight: 83.9154 kg

DRUGS (2)
  1. BUPROPION HCL [Suspect]
     Indication: DEPRESSION
     Dosage: 300 MG DAILY -IN AM PO
     Route: 048
     Dates: start: 20080501, end: 20080601
  2. WELLBUTRIN XL [Suspect]
     Indication: DEPRESSION
     Dosage: 300 MG DAILY IN AM PO
     Route: 048
     Dates: start: 20080601, end: 20081023

REACTIONS (3)
  - ANXIETY [None]
  - DEPRESSED MOOD [None]
  - THERAPEUTIC RESPONSE UNEXPECTED WITH DRUG SUBSTITUTION [None]
